FAERS Safety Report 13947122 (Version 2)
Quarter: 2017Q3

REPORT INFORMATION
  Report Type: Spontaneous
  Country: US (occurrence: US)
  Receive Date: 20170907
  Receipt Date: 20170918
  Transmission Date: 20171128
  Serious: No
  Sender: FDA-Public Use
  Company Number: US-009507513-1709USA003144

PATIENT
  Age: 23 Year
  Sex: Female
  Weight: 87.53 kg

DRUGS (1)
  1. NEXPLANON [Suspect]
     Active Substance: ETONOGESTREL
     Indication: CONTRACEPTION
     Dosage: 1 DF ( IMPLANT), EVERY 3 YEARS
     Route: 059
     Dates: start: 20160919, end: 20170906

REACTIONS (3)
  - Device breakage [Recovered/Resolved]
  - Implant site pain [Recovering/Resolving]
  - Implant site swelling [Recovering/Resolving]

NARRATIVE: CASE EVENT DATE: 20170905
